FAERS Safety Report 5215458-8 (Version None)
Quarter: 2007Q1

REPORT INFORMATION
  Report Type: 
  Country: None (occurrence: None)
  Receive Date: 20070119
  Receipt Date: 20070119
  Transmission Date: 20070707
  Serious: Yes (Hospitalization)
  Sender: FDA-Public Use
  Company Number: None

PATIENT
  Age: 39 Year
  Sex: Male
  Weight: 68.0396 kg

DRUGS (11)
  1. CYCLOPHOSPHAMIDE 1GM [Suspect]
     Indication: MULTIPLE SCLEROSIS
     Dosage: 1 GM ONCE -CYCLE 2- IV
     Route: 042
     Dates: start: 20060815, end: 20060815
  2. MESNA 200MG [Suspect]
     Indication: PROPHYLACTIC CHEMOTHERAPY
     Dosage: 200MG ONCE IV
     Route: 042
     Dates: start: 20060815, end: 20060815
  3. CONCERTA [Concomitant]
  4. PROVIGIL [Concomitant]
  5. WELLBUTRIN XL [Concomitant]
  6. BACLOFEN [Concomitant]
  7. LUNESTA [Concomitant]
  8. AMBIEN CR [Concomitant]
  9. CALCIUM [Concomitant]
  10. CYMBALTA [Concomitant]
  11. KLONOPIN [Concomitant]

REACTIONS (2)
  - BLOOD URINE PRESENT [None]
  - PANCREATITIS [None]
